FAERS Safety Report 18910087 (Version 1)
Quarter: 2021Q1

REPORT INFORMATION
  Report Type: Spontaneous
  Country: US (occurrence: US)
  Receive Date: 20210218
  Receipt Date: 20210218
  Transmission Date: 20210420
  Serious: Yes (Other)
  Sender: FDA-Public Use
  Company Number: None

PATIENT
  Age: 66 Year
  Sex: Male

DRUGS (20)
  1. DILTIAZEM CD 240MG [Concomitant]
  2. LOSARTAN 100MG [Concomitant]
     Active Substance: LOSARTAN
  3. TORSEMIDE 10MG [Concomitant]
     Active Substance: TORSEMIDE
  4. HUMIRA [Suspect]
     Active Substance: ADALIMUMAB
     Indication: CROHN^S DISEASE
     Dosage: ?          OTHER FREQUENCY:EVERY WEEK;?
     Route: 058
     Dates: start: 20201231, end: 20210217
  5. CRANBERRY 200MG [Concomitant]
  6. FOLIC ACID 1MG [Concomitant]
     Active Substance: FOLIC ACID
  7. LIOTHYRONINE 5MCG [Concomitant]
     Active Substance: LIOTHYRONINE
  8. OMEGA?3 FATTY ACIDS [Concomitant]
     Active Substance: OMEGA-3 FATTY ACIDS
  9. PRAVASTATIN. [Concomitant]
     Active Substance: PRAVASTATIN
  10. PREDNISONE 10MG [Concomitant]
     Active Substance: PREDNISONE
  11. AMLODIPINE [Concomitant]
     Active Substance: AMLODIPINE BESYLATE
  12. ASPIRIN 81MG [Concomitant]
     Active Substance: ASPIRIN
  13. VITAMIN B?12 1000MCG [Concomitant]
  14. LEVOTHYROXINE 112MCG [Concomitant]
     Active Substance: LEVOTHYROXINE
  15. ALBUTEROL HFA 90MCG [Concomitant]
  16. VITAMIN C1000MG [Concomitant]
  17. MOVE FREE JOINT HEALTH [Concomitant]
  18. LORAZEPAM 2MG [Concomitant]
     Active Substance: LORAZEPAM
  19. MONTELUKAST [Concomitant]
     Active Substance: MONTELUKAST SODIUM
  20. MULTIVITAMIN [Concomitant]
     Active Substance: VITAMINS

REACTIONS (2)
  - Urticaria [None]
  - Hypersensitivity [None]

NARRATIVE: CASE EVENT DATE: 20210217
